FAERS Safety Report 5386545-9 (Version None)
Quarter: 2007Q3

REPORT INFORMATION
  Report Type: 
  Country: None (occurrence: None)
  Receive Date: 20070713
  Receipt Date: 20070705
  Transmission Date: 20080115
  Serious: Yes (Hospitalization)
  Sender: FDA-Public Use
  Company Number: FR-GENENTECH-231262

PATIENT
  Age: 50 Year
  Sex: Male

DRUGS (2)
  1. RAPTIVA [Suspect]
     Indication: ERYTHRODERMIC PSORIASIS
     Dosage: 64 MG, 1/WEEK
     Route: 058
     Dates: start: 20060317, end: 20060920
  2. RAPTIVA [Suspect]
     Dosage: 44.8 MG, SINGLE
     Route: 058
     Dates: start: 20060310, end: 20060310

REACTIONS (2)
  - GAMMOPATHY [None]
  - PUSTULAR PSORIASIS [None]
